FAERS Safety Report 5023731-1 (Version None)
Quarter: 2006Q2

REPORT INFORMATION
  Report Type: 
  Country: None (occurrence: None)
  Receive Date: 20060428
  Receipt Date: 20060405
  Transmission Date: 20061013
  Serious: Yes (Hospitalization)
  Sender: FDA-Public Use
  Company Number: US-2006-001039

PATIENT
  Age: 54 Year
  Sex: Female
  Weight: 84 kg

DRUGS (6)
  1. LEUKINE [Suspect]
     Indication: NEUTROPENIA
     Dosage: 500 UG/DAY, SUBCUTANEOUS
     Route: 058
     Dates: start: 20060118, end: 20060118
  2. DARVOCET-N (DEXTROPROPOXYPHENE NAPSILATE) [Concomitant]
  3. PREVACID [Concomitant]
  4. SYNTHROID [Concomitant]
  5. COMPAZINE [Concomitant]
  6. ANZEMET [Concomitant]

REACTIONS (2)
  - ARRHYTHMIA [None]
  - CHEST PAIN [None]
